FAERS Safety Report 8325391-0 (Version None)
Quarter: 2012Q2

REPORT INFORMATION
  Report Type: 
  Country: None (occurrence: None)
  Receive Date: 20120501
  Receipt Date: 20100419
  Transmission Date: 20120825
  Serious: No
  Sender: FDA-Public Use
  Company Number: US-TEVA-2010002289

PATIENT
  Sex: Male
  Weight: 106.69 kg

DRUGS (10)
  1. SYNTHROID (GENERIC) [Concomitant]
     Indication: THYROID DISORDER
  2. PRAVACHOL [Concomitant]
     Indication: BLOOD CHOLESTEROL INCREASED
  3. NUVIGIL [Suspect]
     Indication: SLEEP APNOEA SYNDROME
     Dosage: 150 MILLIGRAM;
     Route: 048
     Dates: start: 20100418
  4. NUVIGIL [Suspect]
     Indication: FATIGUE
  5. BYETTA [Concomitant]
     Indication: DIABETES MELLITUS
  6. GLYBURIDE [Concomitant]
     Indication: DIABETES MELLITUS
  7. XALATAN [Concomitant]
     Indication: EYE DISORDER
  8. TRUSOPT [Concomitant]
     Indication: EYE DISORDER
  9. ALTACE [Concomitant]
  10. PAXIL [Concomitant]

REACTIONS (4)
  - BLOOD GLUCOSE INCREASED [None]
  - PSYCHOMOTOR HYPERACTIVITY [None]
  - LOGORRHOEA [None]
  - INSOMNIA [None]
